FAERS Safety Report 22944542 (Version 3)
Quarter: 2023Q4

REPORT INFORMATION
  Report Type: Report from Study
  Country: CO (occurrence: CO)
  Receive Date: 20230914
  Receipt Date: 20231215
  Transmission Date: 20240110
  Serious: Yes (Other)
  Sender: FDA-Public Use
  Company Number: CO-JNJFOC-20230922546

PATIENT
  Sex: Male
  Weight: 80 kg

DRUGS (1)
  1. IMBRUVICA [Suspect]
     Active Substance: IBRUTINIB
     Indication: Mantle cell lymphoma
     Route: 048
     Dates: start: 20230422, end: 20230829

REACTIONS (7)
  - Blindness [Not Recovered/Not Resolved]
  - Ocular neoplasm [Recovered/Resolved]
  - Arthralgia [Not Recovered/Not Resolved]
  - Cataract [Not Recovered/Not Resolved]
  - Eye contusion [Not Recovered/Not Resolved]
  - Eye pain [Not Recovered/Not Resolved]
  - Medication error [Unknown]

NARRATIVE: CASE EVENT DATE: 20230101
